FAERS Safety Report 19058358 (Version 1)
Quarter: 2021Q1

REPORT INFORMATION
  Report Type: Spontaneous
  Country: US (occurrence: US)
  Receive Date: 20210325
  Receipt Date: 20210325
  Transmission Date: 20210420
  Serious: Yes (Other)
  Sender: FDA-Public Use
  Company Number: US-BAYER-2021-108131

PATIENT
  Age: 70 Year
  Sex: Male

DRUGS (4)
  1. NAPROXEN SODIUM. [Concomitant]
     Active Substance: NAPROXEN SODIUM
  2. ASPIRIN (PAIN AND FEVER) [Concomitant]
     Active Substance: ASPIRIN
     Dosage: UNK
  3. FINASTERIDE. [Concomitant]
     Active Substance: FINASTERIDE
  4. MIRALAX [Suspect]
     Active Substance: POLYETHYLENE GLYCOL 3350
     Indication: GASTROINTESTINAL DISORDER
     Dosage: 1 DF, QD
     Route: 048

REACTIONS (5)
  - Aneurysm repair [None]
  - Incorrect dose administered [Unknown]
  - Feeling abnormal [None]
  - Incorrect product administration duration [Unknown]
  - Expired product administered [None]

NARRATIVE: CASE EVENT DATE: 20200622
